FAERS Safety Report 6238994-4 (Version None)
Quarter: 2009Q2

REPORT INFORMATION
  Report Type: 
  Country: None (occurrence: None)
  Receive Date: 20090622
  Receipt Date: 20090609
  Transmission Date: 20091009
  Serious: Yes (Other)
  Sender: FDA-Public Use
  Company Number: B0495085A

PATIENT
  Sex: Male

DRUGS (11)
  1. PAXIL [Suspect]
     Indication: DEPRESSION
     Route: 048
     Dates: start: 20070801
  2. FLUVOXAMINE MALEATE [Concomitant]
     Route: 048
     Dates: end: 20070901
  3. DEPAKENE [Concomitant]
     Route: 048
     Dates: start: 20071201, end: 20080601
  4. LIMAS [Concomitant]
     Route: 048
     Dates: start: 20080601
  5. CONSTAN [Concomitant]
     Route: 048
     Dates: end: 20071201
  6. WYPAX [Concomitant]
     Route: 048
     Dates: start: 20061110, end: 20061201
  7. HALCION [Concomitant]
     Route: 048
     Dates: end: 20061109
  8. MYSLEE [Concomitant]
     Route: 048
     Dates: start: 20061110, end: 20070201
  9. AMOBAN [Concomitant]
     Route: 048
     Dates: start: 20070201
  10. DOGMATYL [Concomitant]
  11. SELENICA R [Concomitant]

REACTIONS (8)
  - ACTIVATION SYNDROME [None]
  - AGGRESSION [None]
  - ANGER [None]
  - APATHY [None]
  - ASTHENIA [None]
  - FEELING GUILTY [None]
  - IRRITABILITY [None]
  - MOOD ALTERED [None]
